FAERS Safety Report 20708102 (Version 1)
Quarter: 2022Q2

REPORT INFORMATION
  Report Type: Spontaneous
  Country: US (occurrence: None)
  Receive Date: 20220414
  Receipt Date: 20220414
  Transmission Date: 20220720
  Serious: No
  Sender: FDA-Public Use
  Company Number: US-Saptalis Pharmaceuticals,LLC-000212

PATIENT
  Sex: Male

DRUGS (4)
  1. ACETIC ACID [Suspect]
     Active Substance: ACETIC ACID
     Indication: Ear infection fungal
     Route: 001
     Dates: start: 20220318, end: 20220318
  2. ASPIRIN [Concomitant]
     Active Substance: ASPIRIN
     Indication: Product used for unknown indication
  3. LISINOPRIL [Concomitant]
     Active Substance: LISINOPRIL
     Indication: Hypertension
  4. ATORVASTATIN [Concomitant]
     Active Substance: ATORVASTATIN
     Indication: Hypercholesterolaemia

REACTIONS (4)
  - Accidental exposure to product [Unknown]
  - Product container issue [Unknown]
  - Erythema [Recovered/Resolved]
  - Pruritus [Recovered/Resolved]

NARRATIVE: CASE EVENT DATE: 20220318
